FAERS Safety Report 20046139 (Version 1)
Quarter: 2021Q4

REPORT INFORMATION
  Report Type: Spontaneous
  Country: US (occurrence: US)
  Receive Date: 20211109
  Receipt Date: 20211109
  Transmission Date: 20220303
  Serious: Yes (Hospitalization)
  Sender: FDA-Public Use
  Company Number: US-JNJFOC-20211049729

PATIENT
  Age: 19 Year
  Sex: Male
  Weight: 60 kg

DRUGS (7)
  1. TYLENOL [Suspect]
     Active Substance: ACETAMINOPHEN
     Indication: Pain
     Route: 065
  2. TYLENOL [Suspect]
     Active Substance: ACETAMINOPHEN
     Indication: Anal fissure
  3. CEFDINIR [Concomitant]
     Active Substance: CEFDINIR
     Indication: Product used for unknown indication
     Route: 065
     Dates: start: 20200806
  4. SPIRONOLACTONE [Concomitant]
     Active Substance: SPIRONOLACTONE
     Indication: Product used for unknown indication
     Route: 065
     Dates: start: 20120901
  5. UROSITOL [Concomitant]
     Indication: Product used for unknown indication
     Route: 065
     Dates: start: 20130101
  6. DIFICID [Concomitant]
     Active Substance: FIDAXOMICIN
     Indication: Product used for unknown indication
     Route: 065
     Dates: start: 20210204
  7. HYQVIA [Concomitant]
     Active Substance: HUMAN IMMUNOGLOBULIN G\HYALURONIDASE RECOMBINANT HUMAN
     Indication: Product used for unknown indication
     Route: 065
     Dates: start: 20200730

REACTIONS (2)
  - Hepatic enzyme increased [Recovered/Resolved]
  - Toxicity to various agents [Recovered/Resolved]

NARRATIVE: CASE EVENT DATE: 20210622
